FAERS Safety Report 7600466-X (Version None)
Quarter: 2011Q2

REPORT INFORMATION
  Report Type: 
  Country: None (occurrence: None)
  Receive Date: 20110629
  Receipt Date: 20110615
  Transmission Date: 20111010
  Serious: Yes (Death)
  Sender: FDA-Public Use
  Company Number: 2011-268

PATIENT
  Age: 30 Year
  Sex: Female

DRUGS (4)
  1. KLONOPIN [Concomitant]
  2. KEPPRA [Concomitant]
  3. EFFEXOR XR [Concomitant]
  4. FAZACLO ODT [Suspect]
     Dosage: 25-450MG, QD, ORAL
     Route: 048
     Dates: start: 20100604, end: 20100604

REACTIONS (1)
  - COMPLETED SUICIDE [None]
